FAERS Safety Report 7410649-X (Version None)
Quarter: 2011Q2

REPORT INFORMATION
  Report Type: 
  Country: None (occurrence: None)
  Receive Date: 20110413
  Receipt Date: 20110217
  Transmission Date: 20111010
  Serious: Yes (Hospitalization, Other)
  Sender: FDA-Public Use
  Company Number: US-BAYER-201038416NA

PATIENT
  Age: 23 Year
  Sex: Female
  Weight: 90.703 kg

DRUGS (7)
  1. IBUPROFEN [Concomitant]
     Dosage: UNK
     Dates: start: 20031101
  2. PROZAC [Concomitant]
     Indication: DEPRESSION
  3. XOPENEX [Concomitant]
     Indication: ASTHMA
  4. YASMIN [Suspect]
     Indication: CONTRACEPTION
     Dosage: UNK
     Dates: start: 20030801, end: 20031123
  5. CYMBALTA [Concomitant]
     Indication: SLEEP DISORDER
  6. FLOVENT [Concomitant]
     Indication: ASTHMA
  7. ALBUTEROL [Concomitant]
     Indication: ASTHMA

REACTIONS (4)
  - PULMONARY EMBOLISM [None]
  - PAINFUL RESPIRATION [None]
  - DYSPNOEA [None]
  - PULMONARY THROMBOSIS [None]
